FAERS Safety Report 21786703 (Version 1)
Quarter: 2022Q4

REPORT INFORMATION
  Report Type: Spontaneous
  Country: US (occurrence: US)
  Receive Date: 20221228
  Receipt Date: 20221228
  Transmission Date: 20230112
  Serious: Yes (Death, Other)
  Sender: FDA-Public Use
  Company Number: US-AMGEN-USASP2022222457

PATIENT

DRUGS (3)
  1. BEVACIZUMAB [Suspect]
     Active Substance: BEVACIZUMAB
     Indication: Neuroendocrine carcinoma of the cervix
     Dosage: 15 MILLIGRAM/KILOGRAM (ON DAY 1 ON A 21 -DAY CYCLE)
     Route: 065
  2. TOPOTECAN [Suspect]
     Active Substance: TOPOTECAN HYDROCHLORIDE
     Indication: Neuroendocrine carcinoma of the cervix
     Dosage: 0.75 MILLIGRAM/M^2 (ON DAYS 1 THROUGH 3)
     Route: 065
  3. PACLITAXEL [Suspect]
     Active Substance: PACLITAXEL
     Indication: Neuroendocrine carcinoma of the cervix
     Dosage: 175 MILLIGRAM/M^2 (ON DAY 1)
     Route: 065

REACTIONS (3)
  - Death [Fatal]
  - Neuroendocrine carcinoma of the cervix [Unknown]
  - Therapy partial responder [Unknown]
